FAERS Safety Report 8701578 (Version 5)
Quarter: 2013Q1

REPORT INFORMATION
  Report Type: Spontaneous
  Country: US (occurrence: US)
  Receive Date: 20120803
  Receipt Date: 20130227
  Transmission Date: 20140127
  Serious: Yes (Hospitalization)
  Sender: FDA-Public Use
  Company Number: US-BIOGENIDEC-2012BI028441

PATIENT
  Age: 66 Year
  Sex: Female

DRUGS (1)
  1. TYSABRI [Suspect]
     Indication: MULTIPLE SCLEROSIS
     Route: 042
     Dates: start: 20080527, end: 20120615

REACTIONS (5)
  - Meningitis herpes [Recovered/Resolved]
  - Decreased immune responsiveness [Recovered/Resolved with Sequelae]
  - Altered state of consciousness [Recovered/Resolved]
  - Headache [Recovered/Resolved]
  - Unresponsive to stimuli [Recovered/Resolved]
